FAERS Safety Report 20895529 (Version 1)
Quarter: 2022Q2

REPORT INFORMATION
  Report Type: Spontaneous
  Country: US (occurrence: US)
  Receive Date: 20220531
  Receipt Date: 20220531
  Transmission Date: 20220720
  Serious: No
  Sender: FDA-Public Use
  Company Number: US-BAYER-2022A075957

PATIENT
  Age: 41 Year
  Sex: Female

DRUGS (2)
  1. MIRENA [Suspect]
     Active Substance: LEVONORGESTREL
     Indication: Intra-uterine contraceptive device insertion
     Dosage: 20?G/DAY
     Route: 015
     Dates: start: 20220408
  2. HUMIRA [Concomitant]
     Active Substance: ADALIMUMAB
     Indication: Psoriasis
     Dosage: UNK
     Dates: start: 20220407

REACTIONS (2)
  - Pruritus [None]
  - Pain [None]

NARRATIVE: CASE EVENT DATE: 20220101
